FAERS Safety Report 6422017-8 (Version None)
Quarter: 2009Q4

REPORT INFORMATION
  Report Type: 
  Country: None (occurrence: None)
  Receive Date: 20091030
  Receipt Date: 20091019
  Transmission Date: 20100525
  Serious: Yes (Hospitalization)
  Sender: FDA-Public Use
  Company Number: ES-ELI_LILLY_AND_COMPANY-ES200910005039

PATIENT
  Age: 58 Year
  Sex: Male

DRUGS (7)
  1. ZYPREXA [Suspect]
     Indication: OBSESSIVE-COMPULSIVE DISORDER
     Dosage: 28 MG, 2/D
     Route: 048
     Dates: start: 20080101, end: 20090705
  2. ENALAPRIL [Concomitant]
     Indication: HYPERTENSION
     Dosage: 20 MG, DAILY (1/D)
     Route: 048
  3. MIRTAZAPINE [Concomitant]
     Indication: OBSESSIVE-COMPULSIVE DISORDER
     Dosage: 30 MG, DAILY (1/D)
     Route: 048
     Dates: start: 20080101, end: 20090705
  4. DEPAKENE [Concomitant]
     Indication: INTENTIONAL SELF-INJURY
     Dosage: 1500 MG, 2/D
     Route: 048
     Dates: start: 20080101, end: 20090705
  5. DEPAKENE [Concomitant]
     Dosage: 20 G, UNK
  6. ETUMINA [Concomitant]
     Indication: OBSESSIVE-COMPULSIVE DISORDER
     Dosage: 40 MG, DAILY (1/D)
     Route: 048
     Dates: start: 20080101, end: 20090705
  7. RIVOTRIL [Concomitant]
     Indication: OBSESSIVE-COMPULSIVE DISORDER
     Dosage: UNK, UNKNOWN
     Route: 048
     Dates: start: 20080101, end: 20090705

REACTIONS (6)
  - HYPOCALCAEMIA [None]
  - HYPOMAGNESAEMIA [None]
  - OVERDOSE [None]
  - PANCYTOPENIA [None]
  - SUICIDE ATTEMPT [None]
  - TOXIC ENCEPHALOPATHY [None]
